FAERS Safety Report 9441546 (Version 1)
Quarter: 2013Q3

REPORT INFORMATION
  Report Type: Report from Study
  Country: CN (occurrence: CN)
  Receive Date: 20130805
  Receipt Date: 20130805
  Transmission Date: 20140515
  Serious: Yes (Other)
  Sender: FDA-Public Use
  Company Number: CN-ROCHE-1257378

PATIENT
  Age: 49 Year
  Sex: Male
  Weight: 55 kg

DRUGS (3)
  1. PEGASYS [Suspect]
     Indication: HEPATITIS C
     Route: 058
     Dates: start: 20111107, end: 20111121
  2. PEGASYS [Suspect]
     Route: 058
     Dates: start: 20111128, end: 201303
  3. RIBAVIRIN [Concomitant]
     Indication: HEPATITIS C
     Dosage: 9 DF PER DAY
     Route: 048
     Dates: start: 20111107, end: 201303

REACTIONS (3)
  - Hepatitis C [Unknown]
  - Weight decreased [Recovering/Resolving]
  - Asthenia [Recovering/Resolving]
